FAERS Safety Report 19237689 (Version 3)
Quarter: 2023Q2

REPORT INFORMATION
  Report Type: Spontaneous
  Country: US (occurrence: US)
  Receive Date: 20210510
  Receipt Date: 20230616
  Transmission Date: 20230722
  Serious: Yes (Hospitalization)
  Sender: FDA-Public Use
  Company Number: US-SA-SAC20210507000239

PATIENT
  Sex: Male

DRUGS (27)
  1. AUBAGIO [Suspect]
     Active Substance: TERIFLUNOMIDE
     Indication: Multiple sclerosis
     Dosage: UNK
     Dates: start: 20210424
  2. VUMERITY [Suspect]
     Active Substance: DIROXIMEL FUMARATE
     Dosage: 231MG
     Dates: start: 202104
  3. BACLOFEN [Concomitant]
     Active Substance: BACLOFEN
  4. BRILINTA [Concomitant]
     Active Substance: TICAGRELOR
  5. DICLOFENAC [Concomitant]
     Active Substance: DICLOFENAC
     Dosage: DICLOFENAC S TBE 75MG
  6. ESCITALOPRAM [Concomitant]
     Active Substance: ESCITALOPRAM OXALATE
  7. FAMOTIDINE [Concomitant]
     Active Substance: FAMOTIDINE
  8. FINASTERIDE [Concomitant]
     Active Substance: FINASTERIDE
  9. HYDROXYZINE HYDROCHLORIDE [Concomitant]
     Active Substance: HYDROXYZINE HYDROCHLORIDE
  10. LAMOTRIGINE [Concomitant]
     Active Substance: LAMOTRIGINE
  11. METOPROLOL TARTRATE [Concomitant]
     Active Substance: METOPROLOL TARTRATE
  12. MYRBETRIQ [Concomitant]
     Active Substance: MIRABEGRON
  13. QUETIAPINE [Concomitant]
     Active Substance: QUETIAPINE
  14. SILDENAFIL [Concomitant]
     Active Substance: SILDENAFIL
  15. SIMVASTATIN [Concomitant]
     Active Substance: SIMVASTATIN
  16. TAMSULOSIN [Concomitant]
     Active Substance: TAMSULOSIN
  17. VITAMIN D3 [Concomitant]
     Active Substance: CHOLECALCIFEROL
  18. METOPROLOL TARTRATE [Concomitant]
     Active Substance: METOPROLOL TARTRATE
  19. GEMTESA [Concomitant]
     Active Substance: VIBEGRON
  20. ASPIRIN [Concomitant]
     Active Substance: ASPIRIN
  21. OMEPRAZOLE [Concomitant]
     Active Substance: OMEPRAZOLE
  22. ROSUVASTATIN [Concomitant]
     Active Substance: ROSUVASTATIN
  23. SYMBICORT [Concomitant]
     Active Substance: BUDESONIDE\FORMOTEROL FUMARATE DIHYDRATE
  24. PREDNISONE [Concomitant]
     Active Substance: PREDNISONE
  25. ALPRAZOLAM [Concomitant]
     Active Substance: ALPRAZOLAM
  26. TYLENOL WITH CODEINE [Concomitant]
     Active Substance: ACETAMINOPHEN\CODEINE PHOSPHATE
  27. HYDROXYZINE HYDROCHLORIDE [Concomitant]
     Active Substance: HYDROXYZINE HYDROCHLORIDE

REACTIONS (6)
  - Fall [Unknown]
  - Dizziness [Unknown]
  - Nausea [Unknown]
  - Dizziness [Unknown]
  - Blood test abnormal [Unknown]
  - Nausea [Unknown]
